FAERS Safety Report 5312607-8 (Version None)
Quarter: 2007Q2

REPORT INFORMATION
  Report Type: 
  Country: None (occurrence: None)
  Receive Date: 20070430
  Receipt Date: 20061102
  Transmission Date: 20071010
  Serious: No
  Sender: FDA-Public Use
  Company Number: 2006UW21495

PATIENT
  Age: 75 Year
  Sex: Female
  Weight: 72.6 kg

DRUGS (2)
  1. NEXIUM [Suspect]
     Indication: DYSPEPSIA
     Route: 048
     Dates: start: 20061019, end: 20061031
  2. THYROID TAB [Concomitant]

REACTIONS (3)
  - ABDOMINAL DISCOMFORT [None]
  - FLATULENCE [None]
  - HAEMATOCHEZIA [None]
